FAERS Safety Report 7627254-2 (Version None)
Quarter: 2011Q3

REPORT INFORMATION
  Report Type: 
  Country: None (occurrence: None)
  Receive Date: 20110721
  Receipt Date: 20110711
  Transmission Date: 20111222
  Serious: Yes (Hospitalization, Other)
  Sender: FDA-Public Use
  Company Number: PHHY2011JP44811

PATIENT
  Sex: Male

DRUGS (5)
  1. CARVEDILOL [Concomitant]
     Dosage: 20 MG DAILY
     Route: 048
  2. AFINITOR [Suspect]
     Indication: RENAL CELL CARCINOMA
     Dosage: 10 MG DAILY
     Route: 048
     Dates: start: 20110202
  3. TOWARAT [Concomitant]
     Dosage: 40 MG DAILY
  4. SUNITINIB MALATE [Concomitant]
     Indication: RENAL CELL CARCINOMA
     Dosage: 25 MG DAILY
     Route: 048
     Dates: start: 20101216, end: 20110112
  5. AFINITOR [Suspect]
     Dosage: 5 MG DAILY
     Dates: start: 20110223, end: 20110326

REACTIONS (8)
  - PLEURAL EFFUSION [None]
  - LYMPHOCYTE COUNT DECREASED [None]
  - BRAIN NATRIURETIC PEPTIDE INCREASED [None]
  - BACTERIAL TEST POSITIVE [None]
  - NEOPLASM PROGRESSION [None]
  - C-REACTIVE PROTEIN INCREASED [None]
  - PNEUMONIA [None]
  - NEOPLASM MALIGNANT [None]
